FAERS Safety Report 5385114-4 (Version None)
Quarter: 2007Q3

REPORT INFORMATION
  Report Type: 
  Country: None (occurrence: None)
  Receive Date: 20070705
  Receipt Date: 20070705
  Transmission Date: 20080115
  Serious: Yes (Other)
  Sender: FDA-Public Use
  Company Number: None

PATIENT
  Age: 66 Year
  Sex: Male

DRUGS (2)
  1. ZOLPIDEM [Suspect]
     Indication: SLEEP DISORDER
     Dosage: 1/2 10 MG TAB NIGHTLY ORAL
     Route: 048
     Dates: start: 20070427
  2. ZOLPIDEM [Suspect]
     Indication: SLEEP DISORDER
     Dosage: 1/2 10 MG TAB NIGHTLY ORAL
     Route: 048
     Dates: start: 20070523

REACTIONS (2)
  - HEADACHE [None]
  - PHARMACEUTICAL PRODUCT COMPLAINT [None]
